FAERS Safety Report 8865545 (Version 1)
Quarter: 2012Q4

REPORT INFORMATION
  Report Type: 
  Country: US (occurrence: US)
  Receive Date: 20121024
  Receipt Date: 20121024
  Transmission Date: 20130627
  Serious: No
  Sender: FDA-Public Use
  Company Number: US-AMGEN-USASP2012003635

PATIENT
  Age: 86 Year
  Sex: Female

DRUGS (10)
  1. ENBREL [Suspect]
     Indication: PRODUCT USED FOR UNKNOWN INDICATION
     Dosage: 50 mg, qwk
     Route: 058
  2. LYRICA [Concomitant]
     Dosage: 100 mg, UNK
  3. ROCALTROL [Concomitant]
     Dosage: UNK
  4. ACTONEL [Concomitant]
     Dosage: 5 mg, UNK
  5. GLUCOSAMIN CHONDR [Concomitant]
     Dosage: UNK
  6. REQUIP [Concomitant]
     Dosage: 4 mg, UNK
  7. CYTOMEL [Concomitant]
     Dosage: UNK
  8. CALCITRIOL [Concomitant]
     Dosage: UNK
  9. LEVOTHYROXIN [Concomitant]
     Dosage: UNK
  10. PREDNISONE [Concomitant]
     Dosage: 1 mg, UNK

REACTIONS (3)
  - Somnolence [Unknown]
  - Myalgia [Unknown]
  - Pain [Unknown]
